FAERS Safety Report 12050831 (Version 1)
Quarter: 2016Q1

REPORT INFORMATION
  Report Type: Spontaneous
  Country: US (occurrence: None)
  Receive Date: 20160208
  Receipt Date: 20160208
  Transmission Date: 20160526
  Serious: No
  Sender: FDA-Public Use
  Company Number: None

PATIENT
  Age: 28 Year
  Sex: Male
  Weight: 109.77 kg

DRUGS (4)
  1. SEROQUEL [Suspect]
     Active Substance: QUETIAPINE FUMARATE
     Indication: SLEEP DISORDER
     Dosage: 25 MG 1 AT BEDTIME TAKEN BY MOUTH
     Route: 048
  2. SEROQUEL [Concomitant]
     Active Substance: QUETIAPINE FUMARATE
  3. GABAPENTIN. [Concomitant]
     Active Substance: GABAPENTIN
  4. SUBOXONE [Concomitant]
     Active Substance: BUPRENORPHINE HYDROCHLORIDE\NALOXONE HYDROCHLORIDE

REACTIONS (4)
  - Flank pain [None]
  - Abasia [None]
  - Arthralgia [None]
  - Pain in extremity [None]

NARRATIVE: CASE EVENT DATE: 20160207
